FAERS Safety Report 24575873 (Version 1)
Quarter: 2024Q4

REPORT INFORMATION
  Report Type: Spontaneous
  Country: PL (occurrence: PL)
  Receive Date: 20241104
  Receipt Date: 20241104
  Transmission Date: 20250115
  Serious: Yes (Hospitalization)
  Sender: JUBILANT
  Company Number: PL-JUBILANT CADISTA PHARMACEUTICALS-2024JUB00085

PATIENT
  Age: 46 Year

DRUGS (1)
  1. CARBAMAZEPINE [Suspect]
     Active Substance: CARBAMAZEPINE
     Dosage: SEVERAL DOZEN TABLETS EACH CONTAINING 200 MG
     Route: 048

REACTIONS (4)
  - Myocardial ischaemia [Recovering/Resolving]
  - Arteriospasm coronary [Recovering/Resolving]
  - Toxicity to various agents [Recovering/Resolving]
  - Overdose [Unknown]
